FAERS Safety Report 19232809 (Version 6)
Quarter: 2022Q1

REPORT INFORMATION
  Report Type: Report from Study
  Country: US (occurrence: None)
  Receive Date: 20210507
  Receipt Date: 20220128
  Transmission Date: 20220423
  Serious: Yes (Death, Hospitalization, Other)
  Sender: FDA-Public Use
  Company Number: US-ROCHE-2824747

PATIENT
  Age: 75 Year
  Sex: Male
  Weight: 113.4 kg

DRUGS (10)
  1. VENETOCLAX [Suspect]
     Active Substance: VENETOCLAX
     Indication: Chronic lymphocytic leukaemia
     Dosage: 20 MG PO QD DAYS 1-7 CYCLE 3,
     Route: 048
  2. VENETOCLAX [Suspect]
     Active Substance: VENETOCLAX
     Dosage: 50 MG PO QD DAYS 8-14, CYCLE 3,
     Route: 048
  3. VENETOCLAX [Suspect]
     Active Substance: VENETOCLAX
     Dosage: 200 MG PO QD DAYS 22-28, CYCLE 3,
     Route: 048
  4. VENETOCLAX [Suspect]
     Active Substance: VENETOCLAX
     Dosage: 400 MG PO QD DAYS 1-28, CYCLES 4-14
     Route: 048
  5. VENETOCLAX [Suspect]
     Active Substance: VENETOCLAX
     Dosage: 100 MG PO QD DAYS 15-21, CYCLE 3?TOTAL DOSE ADMINISTERED THIS COURSE: 9600 MG; LAST ADMINISTERED DAT
     Route: 048
  6. OBINUTUZUMAB [Suspect]
     Active Substance: OBINUTUZUMAB
     Indication: Chronic lymphocytic leukaemia
     Dosage: 100 MG IV ON C1D1
     Route: 042
     Dates: start: 20201207
  7. OBINUTUZUMAB [Suspect]
     Active Substance: OBINUTUZUMAB
     Dosage: 900 MG IV ON C1D2
     Route: 042
  8. OBINUTUZUMAB [Suspect]
     Active Substance: OBINUTUZUMAB
     Dosage: 1000 MG IV ON C1D8 + C1D15, C2-6D1?TOTAL DOSE ADMINISTERED THIS COURSE (DOSE): 1000MG :LAST ADMINIST
     Route: 042
  9. IBRUTINIB [Suspect]
     Active Substance: IBRUTINIB
     Indication: Chronic lymphocytic leukaemia
     Dosage: 420 MG PO QD FOR 15 CYCLES?TOTAL DOSE ADMINISTERED THIS COURSE (DOSE): 15540 MG, LAST ADMINISTERED D
     Route: 048
     Dates: start: 20201207
  10. MODERNA COVID-19 VACCINE [Suspect]
     Active Substance: ELASOMERAN
     Indication: COVID-19
     Dosage: PT ALSO HAD 1ST DOSE OF MODERNA COVID-19 VACCINE ON 08/FEB/2021.
     Route: 065

REACTIONS (9)
  - Death [Fatal]
  - Respiratory failure [Unknown]
  - Hypertension [Recovered/Resolved with Sequelae]
  - Pneumonia [Recovered/Resolved with Sequelae]
  - Hypoxia [Not Recovered/Not Resolved]
  - Dehydration [Recovered/Resolved]
  - Asthenia [Recovered/Resolved]
  - Pyrexia [Recovered/Resolved]
  - COVID-19 [Recovered/Resolved]

NARRATIVE: CASE EVENT DATE: 20210301
